FAERS Safety Report 8234796-8 (Version None)
Quarter: 2012Q1

REPORT INFORMATION
  Report Type: 
  Country: None (occurrence: None)
  Receive Date: 20120326
  Receipt Date: 20120315
  Transmission Date: 20120608
  Serious: Yes (Other)
  Sender: FDA-Public Use
  Company Number: ES-ELI_LILLY_AND_COMPANY-ES201203004591

PATIENT
  Sex: Female
  Weight: 63 kg

DRUGS (4)
  1. IDAPTAN [Concomitant]
     Indication: HYPOACUSIS
     Dosage: 1 DF, BID
     Route: 048
     Dates: start: 20110101
  2. ATORVASTATIN [Concomitant]
     Indication: HYPERCHOLESTEROLAEMIA
     Dosage: 10 MG, QD
     Route: 048
     Dates: start: 20110101
  3. GALAXDAR [Concomitant]
     Indication: MUSCULOSKELETAL PAIN
     Dosage: 1 DF, BID
     Route: 048
     Dates: start: 20070101
  4. FORTEO [Suspect]
     Indication: OSTEOPOROSIS
     Dosage: 20 UG, QD
     Route: 058
     Dates: start: 20110828

REACTIONS (1)
  - DEVICE DISLOCATION [None]
